FAERS Safety Report 7388598-5 (Version None)
Quarter: 2011Q2

REPORT INFORMATION
  Report Type: 
  Country: None (occurrence: None)
  Receive Date: 20110401
  Receipt Date: 20110321
  Transmission Date: 20111010
  Serious: Yes (Life-Threatening, Hospitalization)
  Sender: FDA-Public Use
  Company Number: US-BAYER-2011-026290

PATIENT
  Sex: Male

DRUGS (4)
  1. TYLENOL (CAPLET) [Concomitant]
  2. AVELOX [Suspect]
     Dosage: 400 MG, ONCE
     Dates: start: 20110101, end: 20110101
  3. TAMIFLU [Concomitant]
  4. CODEINE [Concomitant]

REACTIONS (1)
  - HYPERSENSITIVITY [None]
